FAERS Safety Report 9337213 (Version 1)
Quarter: 2013Q2

REPORT INFORMATION
  Report Type: Spontaneous
  Country: US (occurrence: US)
  Receive Date: 20130607
  Receipt Date: 20130607
  Transmission Date: 20140414
  Serious: Yes (Other)
  Sender: FDA-Public Use
  Company Number: US-PFIZER INC-2013172085

PATIENT
  Age: 74 Year
  Sex: Female
  Weight: 92.97 kg

DRUGS (5)
  1. CELEBREX [Suspect]
     Indication: PAIN
     Dosage: 200 MG, 1X/DAY
     Route: 048
     Dates: end: 201305
  2. CELEBREX [Suspect]
     Indication: ARTHRITIS
  3. VITAMIN C [Concomitant]
     Dosage: UNK
  4. LISINOPRIL [Concomitant]
     Indication: HYPERTENSION
     Dosage: UNK
  5. PRAVASTATIN [Concomitant]
     Indication: BLOOD CHOLESTEROL INCREASED
     Dosage: UNK

REACTIONS (5)
  - Spinal disorder [Unknown]
  - Body height decreased [Unknown]
  - Hypotension [Unknown]
  - Weight decreased [Unknown]
  - Decreased appetite [Unknown]
